FAERS Safety Report 6148229-9 (Version None)
Quarter: 2009Q2

REPORT INFORMATION
  Report Type: 
  Country: None (occurrence: None)
  Receive Date: 20090408
  Receipt Date: 20090330
  Transmission Date: 20091009
  Serious: Yes (Hospitalization)
  Sender: FDA-Public Use
  Company Number: US-KINGPHARMUSA00001-K200900384

PATIENT
  Age: 28 Year
  Sex: Female

DRUGS (3)
  1. SEPTRA [Suspect]
     Indication: URINARY TRACT INFECTION
     Dosage: UNK
  2. SODIUM BICARBONATE [Concomitant]
  3. IRON [Concomitant]

REACTIONS (7)
  - ASTHENIA [None]
  - CYANOSIS [None]
  - DYSPNOEA [None]
  - FATIGUE [None]
  - HYPOXIA [None]
  - SOMNOLENCE [None]
  - SULPHAEMOGLOBINAEMIA [None]
